FAERS Safety Report 11926231 (Version 1)
Quarter: 2016Q1

REPORT INFORMATION
  Report Type: Spontaneous
  Country: BR (occurrence: BR)
  Receive Date: 20160119
  Receipt Date: 20160119
  Transmission Date: 20160526
  Serious: Yes (Other)
  Sender: FDA-Public Use
  Company Number: BR-ACCORD-037076

PATIENT
  Age: 46 Year
  Sex: Female
  Weight: 86.4 kg

DRUGS (5)
  1. RANITIDINE [Concomitant]
     Active Substance: RANITIDINE\RANITIDINE HYDROCHLORIDE
     Dosage: 50 MG/2 ML, 1 AMPOULE
     Route: 042
     Dates: start: 20151229, end: 20151229
  2. ONDANSETRON [Concomitant]
     Active Substance: ONDANSETRON
     Route: 042
     Dates: start: 20151229, end: 20151229
  3. DIPHENHYDRAMINE. [Concomitant]
     Active Substance: DIPHENHYDRAMINE
     Dosage: S.F. 100 ML + DIPHENIDRAMINE, 1 AMPOULE
     Route: 042
     Dates: start: 20151229, end: 20151229
  4. PACLITAXEL/PACLITAXEL LIPOSOME [Suspect]
     Active Substance: PACLITAXEL
     Indication: BREAST CANCER
     Dosage: 175 MG/M2 EVERY 21 DAYS, 3RD CYCLE
     Route: 042
     Dates: start: 20151229, end: 20151229
  5. DEXAMETHASONE. [Concomitant]
     Active Substance: DEXAMETHASONE
     Dosage: S.F. 100 ML + DEXAMETHASONE
     Route: 042
     Dates: start: 20151229, end: 20151229

REACTIONS (2)
  - Flushing [Recovered/Resolved]
  - Respiratory distress [Recovered/Resolved]

NARRATIVE: CASE EVENT DATE: 20151229
